FAERS Safety Report 6338282-1 (Version None)
Quarter: 2009Q3

REPORT INFORMATION
  Report Type: 
  Country: None (occurrence: None)
  Receive Date: 20090902
  Receipt Date: 20090826
  Transmission Date: 20100115
  Serious: Yes (Other)
  Sender: FDA-Public Use
  Company Number: US-NAPPMUNDI-USA-2009-0039068

PATIENT
  Sex: Male
  Weight: 59.864 kg

DRUGS (7)
  1. OXYCONTIN [Suspect]
     Indication: ANALGESIA
     Dosage: 80 MG, BID
     Dates: start: 20001014
  2. OXYCONTIN [Suspect]
     Indication: ARTHRITIS
  3. OXYCONTIN [Suspect]
     Indication: BURNING SENSATION
  4. NEURONTIN [Concomitant]
     Indication: NEURALGIA
     Dosage: 1000 MG, TID
  5. FENTANYL [Concomitant]
     Indication: NEURALGIA
     Dosage: UNK
     Route: 062
  6. CRESTOR [Concomitant]
     Indication: BLOOD CHOLESTEROL
     Dosage: 10 MG, UNK
  7. ALLOPURINOL [Concomitant]
     Indication: GOUT
     Dosage: 100 MG, DAILY

REACTIONS (6)
  - BURNING SENSATION [None]
  - CHILLS [None]
  - MUSCLE SPASMS [None]
  - PAIN [None]
  - PROSTATE CANCER [None]
  - TREMOR [None]
